FAERS Safety Report 5711578-X (Version None)
Quarter: 2008Q2

REPORT INFORMATION
  Report Type: 
  Country: None (occurrence: None)
  Receive Date: 20080418
  Receipt Date: 20080418
  Transmission Date: 20081010
  Serious: Yes (Hospitalization, Other)
  Sender: FDA-Public Use
  Company Number: None

PATIENT
  Age: 67 Year
  Sex: Male
  Weight: 48 kg

DRUGS (2)
  1. TRUVADA [Suspect]
     Indication: HIV INFECTION
     Dosage: 1 TAB DAILY PO
     Route: 048
  2. KALETRA [Suspect]
     Indication: HIV INFECTION
     Dosage: 1 TAB TWICE DAILY PO
     Route: 048

REACTIONS (1)
  - RENAL FAILURE ACUTE [None]
